FAERS Safety Report 17653086 (Version 1)
Quarter: 2020Q2

REPORT INFORMATION
  Report Type: Spontaneous
  Country: US (occurrence: US)
  Receive Date: 20200409
  Receipt Date: 20200409
  Transmission Date: 20200713
  Serious: No
  Sender: FDA-Public Use
  Company Number: NVSC2020US096472

PATIENT
  Sex: Female

DRUGS (1)
  1. KISQALI [Suspect]
     Active Substance: RIBOCICLIB
     Indication: MENOPAUSE
     Dosage: 600 MG, UNKNOWN
     Route: 048

REACTIONS (3)
  - Alopecia [Unknown]
  - Diarrhoea [Unknown]
  - Mucosal inflammation [Unknown]
